FAERS Safety Report 10274848 (Version 2)
Quarter: 2015Q3

REPORT INFORMATION
  Report Type: Spontaneous
  Country: US (occurrence: US)
  Receive Date: 20140702
  Receipt Date: 20150817
  Transmission Date: 20151125
  Serious: No
  Sender: FDA-Public Use
  Company Number: US-GILEAD-2014-0107327

PATIENT
  Age: 67 Year
  Sex: Female

DRUGS (21)
  1. DELZICOL [Concomitant]
     Active Substance: MESALAMINE
  2. ESTRACE [Concomitant]
     Active Substance: ESTRADIOL
  3. LEVOTHYROXINE. [Concomitant]
     Active Substance: LEVOTHYROXINE
  4. FUROSEMIDE. [Concomitant]
     Active Substance: FUROSEMIDE
  5. OMEPRAZOLE. [Concomitant]
     Active Substance: OMEPRAZOLE
  6. OXYBUTYNIN [Concomitant]
     Active Substance: OXYBUTYNIN
  7. ASPIRIN. [Concomitant]
     Active Substance: ASPIRIN
  8. VITAMIN D                          /00107901/ [Concomitant]
     Active Substance: ERGOCALCIFEROL
  9. ASMANEX [Concomitant]
     Active Substance: MOMETASONE FUROATE
  10. CILOSTAZOL. [Concomitant]
     Active Substance: CILOSTAZOL
  11. ESTRADIOL. [Concomitant]
     Active Substance: ESTRADIOL
  12. LYRICA [Concomitant]
     Active Substance: PREGABALIN
  13. METOPROLOL [Concomitant]
     Active Substance: METOPROLOL
  14. CALCIUM [Concomitant]
     Active Substance: CALCIUM
  15. ALPRAZOLAN [Concomitant]
  16. LETAIRIS [Suspect]
     Active Substance: AMBRISENTAN
     Indication: PRODUCT USED FOR UNKNOWN INDICATION
     Dosage: 5 MG, QD
     Route: 065
     Dates: start: 201405
  17. DITROPAN [Concomitant]
     Active Substance: OXYBUTYNIN CHLORIDE
  18. HYOSCYAMINE. [Concomitant]
     Active Substance: HYOSCYAMINE
  19. KLOR-CON [Concomitant]
     Active Substance: POTASSIUM CHLORIDE
  20. CELEBREX [Concomitant]
     Active Substance: CELECOXIB
  21. MULTIVITAMIN                       /00097801/ [Concomitant]
     Active Substance: VITAMINS

REACTIONS (1)
  - Heart rate abnormal [Not Recovered/Not Resolved]

NARRATIVE: CASE EVENT DATE: 20140626
